FAERS Safety Report 24624360 (Version 1)
Quarter: 2024Q4

REPORT INFORMATION
  Report Type: Spontaneous
  Country: US (occurrence: US)
  Receive Date: 20241115
  Receipt Date: 20241115
  Transmission Date: 20250115
  Serious: No
  Sender: TEVA
  Company Number: US-TEVA-VS-3259097

PATIENT
  Age: 69 Year
  Sex: Male
  Weight: 74.7 kg

DRUGS (2)
  1. AUSTEDO [Suspect]
     Active Substance: DEUTETRABENAZINE
     Indication: Tardive dyskinesia
     Dosage: 1 TABLET
     Route: 048
  2. AUSTEDO [Suspect]
     Active Substance: DEUTETRABENAZINE
     Indication: Tardive dyskinesia
     Dosage: ONE 9 MG TABLET AND ONE 6 MG  TABLET
     Route: 048

REACTIONS (3)
  - Tremor [Unknown]
  - Somnolence [Unknown]
  - Drug titration error [Unknown]
